FAERS Safety Report 23657437 (Version 1)
Quarter: 2024Q1

REPORT INFORMATION
  Report Type: Spontaneous
  Country: US (occurrence: None)
  Receive Date: 20240321
  Receipt Date: 20240321
  Transmission Date: 20240410
  Serious: Yes (Hospitalization, Disabling, Other)
  Sender: FDA-Public Use
  Company Number: US-ROCHE-3527304

PATIENT
  Sex: Male

DRUGS (1)
  1. EVRYSDI [Suspect]
     Active Substance: RISDIPLAM
     Indication: Spinal muscular atrophy
     Route: 065

REACTIONS (4)
  - Seizure [Unknown]
  - Cerebral atrophy [Unknown]
  - Electroencephalogram abnormal [Unknown]
  - Partial seizures [Unknown]

NARRATIVE: CASE EVENT DATE: 20220507
